FAERS Safety Report 17288475 (Version 2)
Quarter: 2020Q1

REPORT INFORMATION
  Report Type: Report from Study
  Country: GB (occurrence: GB)
  Receive Date: 20200120
  Receipt Date: 20200131
  Transmission Date: 20200409
  Serious: Yes (Hospitalization)
  Sender: FDA-Public Use
  Company Number: GB-BRISTOL-MYERS SQUIBB COMPANY-BMS-2020-001408

PATIENT
  Age: 19 Year
  Sex: Male
  Weight: 46.9 kg

DRUGS (6)
  1. IPILIMUMAB [Suspect]
     Active Substance: IPILIMUMAB
     Indication: GLIOBLASTOMA
     Dosage: 151 MILLIGRAM, Q3WK FOR 4 DOSES
     Route: 042
     Dates: start: 20191122
  2. BENZOYL PEROXIDE. [Concomitant]
     Active Substance: BENZOYL PEROXIDE
     Indication: ACNE
     Dosage: 5 MILLILITER, Q12H
     Route: 061
     Dates: start: 20191115
  3. TEMOZOLOMIDE. [Suspect]
     Active Substance: TEMOZOLOMIDE
     Indication: GLIOBLASTOMA
     Dosage: DAILY FOR 5 DAYS IN 6 X 28 DAY CYCLES
     Route: 048
     Dates: start: 20191213
  4. COTRIMOXAZOLE [Concomitant]
     Active Substance: SULFAMETHOXAZOLE\TRIMETHOPRIM
     Indication: PROPHYLAXIS
     Dosage: 960 MILLIGRAM, Q2D
     Route: 048
     Dates: start: 20191021, end: 20191112
  5. LANSOPRAZOL [Concomitant]
     Active Substance: LANSOPRAZOLE
     Indication: GASTROOESOPHAGEAL REFLUX DISEASE
     Dosage: 30 MILLIGRAM
     Route: 048
     Dates: start: 20200103, end: 20200104
  6. COVONIA DRY COUGH SUGAR FREE FORMULA [Concomitant]
     Active Substance: PHOLCODINE
     Indication: COUGH
     Dosage: 5 MILLILITER, Q8H
     Route: 048
     Dates: start: 20191216

REACTIONS (1)
  - Gastritis [Recovering/Resolving]

NARRATIVE: CASE EVENT DATE: 20200104
